FAERS Safety Report 6334866-5 (Version None)
Quarter: 2009Q3

REPORT INFORMATION
  Report Type: 
  Country: None (occurrence: None)
  Receive Date: 20090831
  Receipt Date: 20070326
  Transmission Date: 20100115
  Serious: Yes (Other)
  Sender: FDA-Public Use
  Company Number: US-ASTRAZENECA-2006UW08352

PATIENT
  Age: 16464 Day
  Sex: Female
  Weight: 116.1 kg

DRUGS (1)
  1. SEROQUEL [Suspect]
     Indication: BIPOLAR DISORDER
     Dosage: 100-800 MG
     Route: 048
     Dates: start: 20040224

REACTIONS (5)
  - DIABETES MELLITUS [None]
  - KETOACIDOSIS [None]
  - NEUROPATHY PERIPHERAL [None]
  - PANCREATITIS [None]
  - TYPE 1 DIABETES MELLITUS [None]
